FAERS Safety Report 6722828-5 (Version None)
Quarter: 2010Q2

REPORT INFORMATION
  Report Type: 
  Country: None (occurrence: None)
  Receive Date: 20100512
  Receipt Date: 20100512
  Transmission Date: 20101027
  Serious: Yes (Life-Threatening, Hospitalization)
  Sender: FDA-Public Use
  Company Number: None

PATIENT
  Age: 41 Year
  Sex: Female
  Weight: 75.7507 kg

DRUGS (1)
  1. YAZ [Suspect]
     Indication: ACNE
     Dosage: ONE DAILY PO
     Route: 048
     Dates: start: 20100404, end: 20100429

REACTIONS (1)
  - PULMONARY THROMBOSIS [None]
